FAERS Safety Report 10276108 (Version 3)
Quarter: 2014Q3

REPORT INFORMATION
  Report Type: Spontaneous
  Country: US (occurrence: US)
  Receive Date: 20140703
  Receipt Date: 20140807
  Transmission Date: 20150326
  Serious: Yes (Other)
  Sender: FDA-Public Use
  Company Number: US-AMGEN-USASP2014037619

PATIENT
  Age: 71 Year
  Sex: Female
  Weight: 75.74 kg

DRUGS (3)
  1. NPLATE [Suspect]
     Active Substance: ROMIPLOSTIM
     Indication: THROMBOCYTOPENIC PURPURA
     Dosage: (1-10) MUG, QWK
     Route: 058
     Dates: start: 20121017
  2. IMMUNOGLOBULIN                     /00025201/ [Concomitant]
     Active Substance: HUMAN IMMUNOGLOBULIN G
     Indication: IMMUNE THROMBOCYTOPENIC PURPURA
     Dosage: 50 G, QWK
     Route: 042
     Dates: start: 20140407
  3. RITUXAN [Concomitant]
     Active Substance: RITUXIMAB
     Dosage: 665 MG, QWK(WEEKLY 4 DOSE)
     Route: 042
     Dates: start: 20140415, end: 20140507

REACTIONS (2)
  - Platelet count decreased [Not Recovered/Not Resolved]
  - Therapeutic response decreased [Unknown]

NARRATIVE: CASE EVENT DATE: 20130312
